FAERS Safety Report 6090971-2 (Version None)
Quarter: 2009Q1

REPORT INFORMATION
  Report Type: 
  Country: None (occurrence: None)
  Receive Date: 20090219
  Receipt Date: 20090219
  Transmission Date: 20090719
  Serious: Yes (Other)
  Sender: FDA-Public Use
  Company Number: None

PATIENT

DRUGS (1)
  1. PURSENNID-EX LAX (NCH) (SENNA GLYCOSIDES (CA SALTS OF PURIFIED SENNA E [Suspect]
     Dosage: 10 TABLETS FOR THE NIGHT, ORAL
     Route: 048

REACTIONS (2)
  - DRUG DEPENDENCE [None]
  - OVERDOSE [None]
